FAERS Safety Report 10369813 (Version 3)
Quarter: 2015Q1

REPORT INFORMATION
  Report Type: Spontaneous
  Country: JP (occurrence: JP)
  Receive Date: 20140808
  Receipt Date: 20150209
  Transmission Date: 20150720
  Serious: Yes (Hospitalization)
  Sender: FDA-Public Use
  Company Number: JP-ROCHE-1444923

PATIENT
  Age: 48 Year
  Sex: Female
  Weight: 50 kg

DRUGS (5)
  1. AVASTIN [Suspect]
     Active Substance: BEVACIZUMAB
     Indication: BREAST CANCER METASTATIC
     Dosage: TREATMENT LINE: 1?COMPLETED TREATMENT CYCLE NUMBER: 2
     Route: 041
     Dates: start: 20130625, end: 20130806
  2. BAKTAR [Suspect]
     Active Substance: SULFAMETHOXAZOLE\TRIMETHOPRIM
     Indication: PNEUMOCYSTIS JIROVECII PNEUMONIA
     Route: 048
     Dates: start: 20130819, end: 20130901
  3. RINDERON V [Suspect]
     Active Substance: BETAMETHASONE VALERATE
     Indication: RADIOTHERAPY TO BONE
     Route: 048
     Dates: start: 20130607, end: 20130630
  4. RINDERON V [Suspect]
     Active Substance: BETAMETHASONE VALERATE
     Indication: RADIOTHERAPY TO BONE
     Route: 048
     Dates: start: 20130701, end: 20130825
  5. PACLITAXEL. [Suspect]
     Active Substance: PACLITAXEL
     Indication: BREAST CANCER RECURRENT
     Dosage: COMPLETED TREATMENT CYCLE NUMBER: 2
     Route: 041
     Dates: start: 20130625, end: 20130806

REACTIONS (2)
  - Rash [Unknown]
  - Pneumocystis jirovecii pneumonia [Recovered/Resolved]

NARRATIVE: CASE EVENT DATE: 201308
